FAERS Safety Report 14922112 (Version 1)
Quarter: 2018Q2

REPORT INFORMATION
  Report Type: Spontaneous
  Country: KR (occurrence: KR)
  Receive Date: 20180522
  Receipt Date: 20180522
  Transmission Date: 20180711
  Serious: No
  Sender: FDA-Public Use
  Company Number: KR-LUPIN PHARMACEUTICALS INC.-2017-04063

PATIENT
  Age: 58 Year
  Sex: Male

DRUGS (5)
  1. ARIPIPRAZOLE. [Suspect]
     Active Substance: ARIPIPRAZOLE
     Indication: SCHIZOPHRENIA
     Dosage: UNK
     Route: 065
  2. QUETIAPINE. [Suspect]
     Active Substance: QUETIAPINE
     Indication: SCHIZOPHRENIA
     Dosage: 25 MG, UNK
     Route: 065
  3. PALIPERIDONE. [Suspect]
     Active Substance: PALIPERIDONE
     Indication: SCHIZOPHRENIA
     Dosage: UNK
     Route: 065
  4. DIAZEPAM. [Suspect]
     Active Substance: DIAZEPAM
     Indication: SCHIZOPHRENIA
     Dosage: 5 MG, UNK
     Route: 065
  5. OLANZAPINE. [Suspect]
     Active Substance: OLANZAPINE
     Indication: SCHIZOPHRENIA
     Dosage: UNK
     Route: 065

REACTIONS (1)
  - Parkinsonism [Recovering/Resolving]
